FAERS Safety Report 18490702 (Version 1)
Quarter: 2020Q4

REPORT INFORMATION
  Report Type: Spontaneous
  Country: SI (occurrence: SI)
  Receive Date: 20201111
  Receipt Date: 20201111
  Transmission Date: 20210114
  Serious: Yes (Other)
  Sender: FDA-Public Use
  Company Number: SI-BAYER-2020-239264

PATIENT
  Age: 72 Year
  Sex: Female

DRUGS (2)
  1. REGORAFENIB. [Suspect]
     Active Substance: REGORAFENIB
     Indication: HEPATOCELLULAR CARCINOMA
     Dosage: DAILY DOSE 160 MG
     Dates: start: 202003
  2. REGORAFENIB. [Suspect]
     Active Substance: REGORAFENIB
     Indication: HEPATOCELLULAR CARCINOMA
     Dosage: DAILY DOSE 80 MG
     Dates: start: 202004, end: 202011

REACTIONS (4)
  - Metastases to spine [None]
  - Hepatocellular carcinoma [None]
  - Osteoporotic fracture [None]
  - Drug intolerance [None]

NARRATIVE: CASE EVENT DATE: 202003
